FAERS Safety Report 6144567-4 (Version None)
Quarter: 2009Q2

REPORT INFORMATION
  Report Type: 
  Country: None (occurrence: None)
  Receive Date: 20090406
  Receipt Date: 20090330
  Transmission Date: 20091009
  Serious: Yes (Other)
  Sender: FDA-Public Use
  Company Number: PHEH2008US06038

PATIENT
  Sex: Female

DRUGS (1)
  1. RECLAST [Suspect]
     Indication: OSTEOPOROSIS
     Dosage: UNK
     Dates: start: 20071117

REACTIONS (4)
  - ARTHRALGIA [None]
  - BLOOD CALCIUM DECREASED [None]
  - CARPAL TUNNEL DECOMPRESSION [None]
  - PAIN IN EXTREMITY [None]
